FAERS Safety Report 7700789-X (Version None)
Quarter: 2011Q3

REPORT INFORMATION
  Report Type: 
  Country: None (occurrence: None)
  Receive Date: 20110822
  Receipt Date: 20110810
  Transmission Date: 20111222
  Serious: Yes (Death, Other)
  Sender: FDA-Public Use
  Company Number: US-AMGEN-USASP2011040720

PATIENT
  Sex: Female

DRUGS (1)
  1. ENBREL [Suspect]
     Indication: RHEUMATOID ARTHRITIS
     Dosage: 50 MG, QWK
     Dates: start: 19991001, end: 20110710

REACTIONS (4)
  - CONVULSION [None]
  - HYPERTENSION [None]
  - AORTIC ANEURYSM [None]
  - CARDIAC CIRRHOSIS [None]
